FAERS Safety Report 6348379-8 (Version None)
Quarter: 2009Q3

REPORT INFORMATION
  Report Type: 
  Country: None (occurrence: None)
  Receive Date: 20090908
  Receipt Date: 20090818
  Transmission Date: 20100115
  Serious: No
  Sender: FDA-Public Use
  Company Number: 20097323

PATIENT
  Sex: Female

DRUGS (3)
  1. LIORESAL [Suspect]
     Indication: MUSCLE SPASTICITY
     Dosage: DAILY, INTRATHECAL
     Route: 037
  2. CYTOMEL [Concomitant]
  3. LEVOXYL [Concomitant]

REACTIONS (5)
  - HYPERHIDROSIS [None]
  - HYPERSENSITIVITY [None]
  - OVERDOSE [None]
  - UNDERDOSE [None]
  - UNRESPONSIVE TO STIMULI [None]
